FAERS Safety Report 8090970-5 (Version None)
Quarter: 2012Q1

REPORT INFORMATION
  Report Type: 
  Country: None (occurrence: None)
  Receive Date: 20120128
  Receipt Date: 20110729
  Transmission Date: 20120608
  Serious: No
  Sender: FDA-Public Use
  Company Number: US-ABBOTT-11P-163-0842970-00

PATIENT
  Age: 24 Year
  Sex: Female

DRUGS (13)
  1. OXYCONTIN [Concomitant]
     Indication: PAIN
     Dosage: DAILY
  2. MAGNESIUM [Concomitant]
     Indication: PRODUCT USED FOR UNKNOWN INDICATION
  3. CALCIUM [Concomitant]
     Indication: PRODUCT USED FOR UNKNOWN INDICATION
  4. VITAMIN D [Concomitant]
     Indication: PRODUCT USED FOR UNKNOWN INDICATION
  5. PERCOCET [Concomitant]
     Indication: BREAKTHROUGH PAIN
  6. HUMIRA [Suspect]
     Indication: CROHN'S DISEASE
     Dates: start: 20101101
  7. VIT E [Concomitant]
     Indication: PRODUCT USED FOR UNKNOWN INDICATION
  8. ZINC SULFATE [Concomitant]
     Indication: PRODUCT USED FOR UNKNOWN INDICATION
  9. PAROXETINE [Concomitant]
     Indication: DEPRESSION
     Dosage: DAILY
  10. ONDANSETRON [Concomitant]
     Indication: NAUSEA
  11. ACYCLOVIR [Concomitant]
     Indication: HERPES VIRUS INFECTION
  12. IRON [Concomitant]
     Indication: PRODUCT USED FOR UNKNOWN INDICATION
  13. JUICE PLUS [Concomitant]
     Indication: PRODUCT USED FOR UNKNOWN INDICATION

REACTIONS (3)
  - DRUG INEFFECTIVE [None]
  - NASOPHARYNGITIS [None]
  - FATIGUE [None]
